FAERS Safety Report 6740475-6 (Version None)
Quarter: 2010Q2

REPORT INFORMATION
  Report Type: 
  Country: None (occurrence: None)
  Receive Date: 20100525
  Receipt Date: 20100519
  Transmission Date: 20101027
  Serious: Yes (Hospitalization)
  Sender: FDA-Public Use
  Company Number: PHHO2010DE04403

PATIENT
  Sex: Male
  Weight: 75 kg

DRUGS (4)
  1. CERTICAN [Suspect]
     Indication: RENAL TRANSPLANT
     Dosage: UNK
     Route: 048
     Dates: start: 20090422, end: 20100329
  2. MYFORTIC [Suspect]
     Indication: RENAL TRANSPLANT
     Dosage: UNK
     Route: 048
     Dates: start: 20090422, end: 20100329
  3. PREDNISOLONE [Suspect]
     Dosage: UNK
     Route: 048
     Dates: start: 20090422
  4. VALCYTE [Concomitant]

REACTIONS (4)
  - DYSPNOEA [None]
  - EPSTEIN-BARR VIRUS INFECTION [None]
  - PANCYTOPENIA [None]
  - PRODUCTIVE COUGH [None]
